FAERS Safety Report 6663860-X (Version None)
Quarter: 2010Q2

REPORT INFORMATION
  Report Type: 
  Country: None (occurrence: None)
  Receive Date: 20100401
  Receipt Date: 20100329
  Transmission Date: 20101027
  Serious: Yes (Other)
  Sender: FDA-Public Use
  Company Number: US-BAYER-201017976NA

PATIENT
  Age: 27 Year
  Sex: Female

DRUGS (1)
  1. YAZ [Suspect]
     Indication: CONTRACEPTION
     Route: 048
     Dates: start: 20100321, end: 20100325

REACTIONS (3)
  - CHEST PAIN [None]
  - DYSPNOEA [None]
  - PALPITATIONS [None]
